FAERS Safety Report 22333555 (Version 1)
Quarter: 2023Q2

REPORT INFORMATION
  Report Type: Spontaneous
  Country: US (occurrence: US)
  Receive Date: 20230517
  Receipt Date: 20230517
  Transmission Date: 20230722
  Serious: Yes (Hospitalization)
  Sender: FDA-Public Use
  Company Number: US-MYLANLABS-2023M1050854

PATIENT
  Age: 41 Year
  Sex: Female

DRUGS (6)
  1. NAPROXEN [Suspect]
     Active Substance: NAPROXEN
     Indication: Pericarditis
     Dosage: UNK
     Route: 065
  2. AMLODIPINE [Concomitant]
     Active Substance: AMLODIPINE BESYLATE
     Indication: Hypertension
     Dosage: UNK
     Route: 065
  3. METOPROLOL TARTRATE [Concomitant]
     Active Substance: METOPROLOL TARTRATE
     Indication: Hypertension
     Dosage: UNK
     Route: 065
  4. ATORVASTATIN [Concomitant]
     Active Substance: ATORVASTATIN
     Indication: Hyperlipidaemia
     Dosage: UNK
     Route: 065
  5. PREDNISONE [Concomitant]
     Active Substance: PREDNISONE
     Indication: Product used for unknown indication
     Dosage: 5 MILLIGRAM
     Route: 065
  6. SEVELAMER [Concomitant]
     Active Substance: SEVELAMER
     Indication: Product used for unknown indication
     Dosage: UNK
     Route: 065

REACTIONS (1)
  - Drug ineffective [Unknown]
